FAERS Safety Report 4634238-5 (Version None)
Quarter: 2005Q2

REPORT INFORMATION
  Report Type: 
  Country: None (occurrence: None)
  Receive Date: 20050413
  Receipt Date: 20050329
  Transmission Date: 20051028
  Serious: Yes (Death)
  Sender: FDA-Public Use
  Company Number: PHHO2005NL05063

PATIENT
  Age: 74 Year
  Sex: Male

DRUGS (1)
  1. LESCOL [Suspect]
     Indication: HYPERCHOLESTEROLAEMIA

REACTIONS (2)
  - CIRCULATORY COLLAPSE [None]
  - MYOCARDIAL ISCHAEMIA [None]
